FAERS Safety Report 9741469 (Version 1)
Quarter: 2013Q4

REPORT INFORMATION
  Report Type: Spontaneous
  Country: FR (occurrence: FR)
  Receive Date: 20131209
  Receipt Date: 20131209
  Transmission Date: 20140711
  Serious: Yes (Other)
  Sender: FDA-Public Use
  Company Number: PHHY2013FR142903

PATIENT
  Sex: Female

DRUGS (1)
  1. COTAREG [Suspect]
     Dosage: UNK UKN, UNK

REACTIONS (1)
  - Glaucoma [Unknown]
